FAERS Safety Report 9236819 (Version 2)
Quarter: 2013Q3

REPORT INFORMATION
  Report Type: Spontaneous
  Country: DE (occurrence: None)
  Receive Date: 20130415
  Receipt Date: 20130729
  Transmission Date: 20140515
  Serious: Yes (Other)
  Sender: FDA-Public Use
  Company Number: HRA-CDB20130041

PATIENT
  Age: 32 Year
  Sex: Female

DRUGS (1)
  1. ELLAONE [Suspect]
     Indication: CONTRACEPTION

REACTIONS (2)
  - Unintended pregnancy [None]
  - Haemorrhage in pregnancy [None]
